FAERS Safety Report 19155978 (Version 1)
Quarter: 2021Q2

REPORT INFORMATION
  Report Type: Spontaneous
  Country: FR (occurrence: FR)
  Receive Date: 20210419
  Receipt Date: 20210419
  Transmission Date: 20210717
  Serious: Yes (Death, Hospitalization)
  Sender: FDA-Public Use
  Company Number: FR-PFIZER INC-2021311285

PATIENT
  Age: 41 Year
  Sex: Male
  Weight: 85 kg

DRUGS (10)
  1. DAPTOMYCINE [Suspect]
     Active Substance: DAPTOMYCIN
     Indication: ANTIBIOTIC THERAPY
     Dosage: 1 G, DAILY
     Route: 042
     Dates: start: 20210215, end: 20210219
  2. LOVENOX [Concomitant]
     Active Substance: ENOXAPARIN SODIUM
     Indication: THROMBOSIS PROPHYLAXIS
     Dosage: 1 DF, 1X/DAY
     Route: 058
     Dates: start: 20210125
  3. LEVOFLOXACINE [LEVOFLOXACIN HEMIHYDRATE] [Concomitant]
     Active Substance: LEVOFLOXACIN
     Indication: ANTIBIOTIC THERAPY
     Dosage: 500 MG, 1X/DAY
     Route: 042
     Dates: start: 20210212, end: 20210215
  4. SANDOSTATINE [Concomitant]
     Active Substance: OCTREOTIDE ACETATE
     Dosage: 1180 UG, 1X/DAY
     Route: 042
     Dates: start: 20210216
  5. CLOXACILLINE [CLOXACILLIN] [Concomitant]
     Active Substance: CLOXACILLIN
     Indication: ANTIBIOTIC THERAPY
     Dosage: 7.5 G, 1X/DAY
     Route: 042
     Dates: start: 20210209, end: 20210215
  6. XENETIX [Concomitant]
     Active Substance: IOBITRIDOL
     Indication: SCAN
     Dosage: 135 ML, SINGLE
     Route: 042
     Dates: start: 20210217, end: 20210217
  7. TAZOCILLINE [Suspect]
     Active Substance: PIPERACILLIN SODIUM\TAZOBACTAM SODIUM
     Indication: ANTIBIOTIC THERAPY
     Dosage: 24 G, 1X/DAY
     Route: 042
     Dates: start: 20210215, end: 20210218
  8. LINEZOLIDE [Concomitant]
     Active Substance: LINEZOLID
     Indication: ANTIBIOTIC THERAPY
     Dosage: UNK
     Route: 042
     Dates: start: 20210208, end: 20210209
  9. PANTOPRAZOLE [Concomitant]
     Active Substance: PANTOPRAZOLE
     Indication: GASTROINTESTINAL HAEMORRHAGE
     Dosage: 40 MG, 1X/DAY
     Route: 042
     Dates: start: 20210216
  10. TERLIPRESSINE [TERLIPRESSIN] [Concomitant]
     Indication: GASTROINTESTINAL HAEMORRHAGE
     Dosage: 4 MG, 1X/DAY
     Route: 042
     Dates: start: 20210207

REACTIONS (4)
  - Drug reaction with eosinophilia and systemic symptoms [Not Recovered/Not Resolved]
  - Product use issue [Unknown]
  - Multiple organ dysfunction syndrome [Fatal]
  - Off label use [Unknown]

NARRATIVE: CASE EVENT DATE: 20210215
